FAERS Safety Report 5085931-4 (Version None)
Quarter: 2006Q3

REPORT INFORMATION
  Report Type: 
  Country: None (occurrence: None)
  Receive Date: 20060817
  Receipt Date: 20060802
  Transmission Date: 20061208
  Serious: Yes (Hospitalization, Other)
  Sender: FDA-Public Use
  Company Number: 2006083130

PATIENT
  Age: 77 Year
  Sex: Male
  Weight: 58 kg

DRUGS (2)
  1. CABERGOLINE [Suspect]
     Indication: PARKINSON'S DISEASE
     Dosage: 2 MG (1 MGL 2 IN 1 D), ORAL
     Route: 048
     Dates: start: 20000101, end: 20060628
  2. LEVODOPA-CARBIDOPA (CARBIDOPA, LEVODOPA) [Concomitant]

REACTIONS (8)
  - C-REACTIVE PROTEIN INCREASED [None]
  - COLLAGEN DISORDER [None]
  - INTERSTITIAL LUNG DISEASE [None]
  - ORAL INTAKE REDUCED [None]
  - OXYGEN SATURATION DECREASED [None]
  - PNEUMONIA ASPIRATION [None]
  - PNEUMONIA BACTERIAL [None]
  - RHEUMATOID FACTOR POSITIVE [None]
